FAERS Safety Report 7899286-0 (Version None)
Quarter: 2011Q4

REPORT INFORMATION
  Report Type: 
  Country: None (occurrence: None)
  Receive Date: 20111107
  Receipt Date: 20110912
  Transmission Date: 20120403
  Serious: No
  Sender: FDA-Public Use
  Company Number: US-AMGEN-USASP2011046623

PATIENT
  Age: 54 Year
  Sex: Female

DRUGS (9)
  1. HORMONES [Concomitant]
  2. PREDNISONE [Concomitant]
  3. ENBREL [Suspect]
     Indication: RHEUMATOID ARTHRITIS
     Dosage: UNK UNK, QWK
     Dates: start: 20110101
  4. AMBIEN [Concomitant]
  5. VITAMIN B-12 [Concomitant]
  6. THYROID TAB [Concomitant]
  7. ZANAFLEX [Concomitant]
  8. LORTAB [Concomitant]
  9. HYDROCHLOROTHIAZIDE [Concomitant]

REACTIONS (3)
  - INJECTION SITE SWELLING [None]
  - INJECTION SITE PAIN [None]
  - INJECTION SITE REACTION [None]
